FAERS Safety Report 12212013 (Version 2)
Quarter: 2016Q2

REPORT INFORMATION
  Report Type: Report from Study
  Country: BR (occurrence: BR)
  Receive Date: 20160325
  Receipt Date: 20160412
  Transmission Date: 20160815
  Serious: No
  Sender: FDA-Public Use
  Company Number: PHHY2016BR040312

PATIENT
  Sex: Female
  Weight: 24.6 kg

DRUGS (6)
  1. BIPERIDEN [Concomitant]
     Active Substance: BIPERIDEN
     Indication: ISCHAEMIC STROKE
     Dosage: 3 DF, QD
     Route: 048
     Dates: start: 2004
  2. HYDREA [Concomitant]
     Active Substance: HYDROXYUREA
     Indication: BLOOD DISORDER
     Dosage: 500 MG, QD
     Route: 048
  3. CARBAMAZEPINE. [Concomitant]
     Active Substance: CARBAMAZEPINE
     Indication: ISCHAEMIC STROKE
     Dosage: 7 ML, Q12H
     Route: 048
     Dates: start: 2004
  4. BACLOFEN. [Concomitant]
     Active Substance: BACLOFEN
     Indication: ISCHAEMIC STROKE
     Dosage: 2 DF, QD
     Route: 048
     Dates: start: 2004
  5. PEN-VE-ORAL [Concomitant]
     Active Substance: PENICILLIN V POTASSIUM
     Indication: INFECTION PROPHYLAXIS
     Dosage: 2 DF, QD
     Route: 048
     Dates: start: 2015
  6. EXJADE [Suspect]
     Active Substance: DEFERASIROX
     Indication: SICKLE CELL ANAEMIA
     Dosage: 500MG (20 MG/KG) FROM MONDAY TO FRIDAY AND 1000MG (40 MG/KG), ON WEEKENDS
     Route: 048
     Dates: start: 2013

REACTIONS (1)
  - Liver disorder [Unknown]
